FAERS Safety Report 13784094 (Version 2)
Quarter: 2017Q4

REPORT INFORMATION
  Report Type: Spontaneous
  Country: JP (occurrence: JP)
  Receive Date: 20170724
  Receipt Date: 20171228
  Transmission Date: 20180320
  Serious: Yes (Other)
  Sender: FDA-Public Use
  Company Number: JP-CELGENEUS-JPN-20170510280

PATIENT
  Sex: Male

DRUGS (5)
  1. REVLIMID [Suspect]
     Active Substance: LENALIDOMIDE
     Indication: PLASMA CELL MYELOMA
     Dosage: 10 MILLIGRAM
     Route: 048
     Dates: start: 20170525
  2. VELCADE [Concomitant]
     Active Substance: BORTEZOMIB
     Indication: PLASMA CELL MYELOMA
     Route: 065
     Dates: end: 2017
  3. LENADEX [Suspect]
     Active Substance: DEXAMETHASONE ACETATE
     Route: 048
     Dates: start: 20170525
  4. LENADEX [Suspect]
     Active Substance: DEXAMETHASONE ACETATE
     Indication: PLASMA CELL MYELOMA
     Route: 048
     Dates: end: 2017
  5. KYPROLIS [Concomitant]
     Active Substance: CARFILZOMIB
     Indication: PLASMA CELL MYELOMA
     Route: 065
     Dates: start: 20170525

REACTIONS (2)
  - Plasma cell myeloma recurrent [Recovering/Resolving]
  - Urinary retention [Recovering/Resolving]
